FAERS Safety Report 5989003-3 (Version None)
Quarter: 2008Q4

REPORT INFORMATION
  Report Type: 
  Country: None (occurrence: None)
  Receive Date: 20081210
  Receipt Date: 20081205
  Transmission Date: 20090506
  Serious: Yes (Death)
  Sender: FDA-Public Use
  Company Number: A0759828A

PATIENT
  Age: 57 Year
  Sex: Male
  Weight: 120.5 kg

DRUGS (6)
  1. AVANDIA [Suspect]
     Dosage: 4MG TWICE PER DAY
     Route: 048
     Dates: start: 20000101, end: 20051212
  2. PLAVIX [Concomitant]
  3. COREG [Concomitant]
  4. METOPROLOL TARTRATE [Concomitant]
  5. ZAROXOLYN [Concomitant]
  6. ZOCOR [Concomitant]

REACTIONS (1)
  - MYOCARDIAL INFARCTION [None]
